FAERS Safety Report 25771975 (Version 1)
Quarter: 2025Q3

REPORT INFORMATION
  Report Type: Spontaneous
  Country: GB (occurrence: GB)
  Receive Date: 20250908
  Receipt Date: 20250908
  Transmission Date: 20251021
  Serious: Yes (Other)
  Sender: TAKEDA
  Company Number: None

PATIENT
  Age: 24 Year
  Sex: Female
  Weight: 48 kg

DRUGS (3)
  1. LISDEXAMFETAMINE DIMESYLATE [Suspect]
     Active Substance: LISDEXAMFETAMINE DIMESYLATE
     Indication: Attention deficit hyperactivity disorder
  2. LISDEXAMFETAMINE DIMESYLATE [Suspect]
     Active Substance: LISDEXAMFETAMINE DIMESYLATE
     Dosage: 50 MILLIGRAM, QD
     Dates: start: 20250818, end: 20250831
  3. LANSOPRAZOLE [Concomitant]
     Active Substance: LANSOPRAZOLE
     Indication: Gastrooesophageal reflux disease

REACTIONS (10)
  - Paraesthesia [Recovered/Resolved]
  - Dyspnoea [Recovering/Resolving]
  - Mydriasis [Recovered/Resolved]
  - Peripheral coldness [Recovered/Resolved]
  - Logorrhoea [Recovered/Resolved]
  - Insomnia [Recovering/Resolving]
  - Psychomotor hyperactivity [Recovered/Resolved]
  - Repetitive strain injury [Recovering/Resolving]
  - Visual impairment [Recovering/Resolving]
  - Anxiety [Recovering/Resolving]
